FAERS Safety Report 4909271-6 (Version None)
Quarter: 2006Q1

REPORT INFORMATION
  Report Type: 
  Country: None (occurrence: None)
  Receive Date: 20060213
  Receipt Date: 20060207
  Transmission Date: 20060701
  Serious: Yes (Death)
  Sender: FDA-Public Use
  Company Number: 2006UW02095

PATIENT
  Age: 66 Year
  Sex: Male

DRUGS (1)
  1. CRESTOR [Suspect]

REACTIONS (1)
  - ROAD TRAFFIC ACCIDENT [None]
